FAERS Safety Report 20986553 (Version 1)
Quarter: 2022Q2

REPORT INFORMATION
  Report Type: Report from Study
  Country: US (occurrence: US)
  Receive Date: 20220621
  Receipt Date: 20220621
  Transmission Date: 20220721
  Serious: Yes (Hospitalization, Other)
  Sender: FDA-Public Use
  Company Number: US-ABBVIE-22K-163-4282356-00

PATIENT
  Sex: Female
  Weight: 98.518 kg

DRUGS (14)
  1. HUMIRA [Suspect]
     Active Substance: ADALIMUMAB
     Indication: Psoriatic arthropathy
     Dosage: CITRATE FREE
     Route: 058
     Dates: start: 2016
  2. HUMIRA [Suspect]
     Active Substance: ADALIMUMAB
     Indication: Rheumatoid arthritis
  3. MODERNA COVID-19 VACCINE [Concomitant]
     Active Substance: ELASOMERAN
     Indication: COVID-19 immunisation
     Route: 030
     Dates: start: 20210316, end: 20210316
  4. MODERNA COVID-19 VACCINE [Concomitant]
     Active Substance: ELASOMERAN
     Route: 030
     Dates: start: 20210413, end: 20210413
  5. BUPROPION [Concomitant]
     Active Substance: BUPROPION
     Indication: Depression
  6. HYDROCHLOROTHIAZIDE [Concomitant]
     Active Substance: HYDROCHLOROTHIAZIDE
     Indication: Fluid retention
  7. CYMBALTA [Concomitant]
     Active Substance: DULOXETINE HYDROCHLORIDE
     Indication: Arthralgia
  8. FOLIC ACID [Concomitant]
     Active Substance: FOLIC ACID
     Indication: Supplementation therapy
  9. VITAMIN D3 [Concomitant]
     Active Substance: CHOLECALCIFEROL
     Indication: Supplementation therapy
  10. ZINC [Concomitant]
     Active Substance: ZINC
     Indication: Supplementation therapy
  11. METOPROLOL [Concomitant]
     Active Substance: METOPROLOL
     Indication: Hypertension
  12. PRIMIDONE [Concomitant]
     Active Substance: PRIMIDONE
     Indication: Tremor
  13. PRIMIDONE [Concomitant]
     Active Substance: PRIMIDONE
     Indication: Dyskinesia
  14. ZYRTEC [Concomitant]
     Active Substance: CETIRIZINE HYDROCHLORIDE
     Indication: Hypersensitivity

REACTIONS (6)
  - Cholelithiasis [Recovering/Resolving]
  - Abdominal pain [Recovered/Resolved]
  - Back disorder [Recovering/Resolving]
  - Gastric disorder [Recovering/Resolving]
  - COVID-19 [Not Recovered/Not Resolved]
  - Herpes ophthalmic [Unknown]

NARRATIVE: CASE EVENT DATE: 20200101
